FAERS Safety Report 17531206 (Version 2)
Quarter: 2021Q3

REPORT INFORMATION
  Report Type: Spontaneous
  Country: US (occurrence: US)
  Receive Date: 20200311
  Receipt Date: 20210819
  Transmission Date: 20211014
  Serious: Yes (Life-Threatening, Hospitalization, Other)
  Sender: FDA-Public Use
  Company Number: US-ELI_LILLY_AND_COMPANY-US202003001116

PATIENT
  Age: 46 Year
  Sex: Male

DRUGS (3)
  1. TRULICITY [Suspect]
     Active Substance: DULAGLUTIDE
     Dosage: 0.75 MG, UNKNOWN
     Route: 058
     Dates: start: 2016
  2. TRULICITY [Suspect]
     Active Substance: DULAGLUTIDE
     Indication: TYPE 2 DIABETES MELLITUS
     Dosage: 0.75 MG, UNKNOWN
     Route: 058
     Dates: start: 2016
  3. METFORMIN [Concomitant]
     Active Substance: METFORMIN HYDROCHLORIDE
     Indication: TYPE 2 DIABETES MELLITUS

REACTIONS (22)
  - Oxygen saturation decreased [Unknown]
  - Hallucination [Unknown]
  - Diabetes mellitus inadequate control [Unknown]
  - Interstitial lung disease [Unknown]
  - Head injury [Unknown]
  - Pulmonary oedema [Unknown]
  - Weight increased [Unknown]
  - Depression [Unknown]
  - Illness [Unknown]
  - Fall [Unknown]
  - Chills [Unknown]
  - Pneumonitis [Unknown]
  - Pyrexia [Unknown]
  - Hypersensitivity [Unknown]
  - Loss of consciousness [Unknown]
  - Blood pressure decreased [Unknown]
  - Memory impairment [Unknown]
  - Stress [Unknown]
  - Pain [Unknown]
  - Weight decreased [Unknown]
  - Fluid retention [Unknown]
  - Heart rate increased [Unknown]

NARRATIVE: CASE EVENT DATE: 20200228
